FAERS Safety Report 15844607 (Version 1)
Quarter: 2019Q1

REPORT INFORMATION
  Report Type: Spontaneous
  Country: GB (occurrence: GB)
  Receive Date: 20190118
  Receipt Date: 20190118
  Transmission Date: 20190417
  Serious: Yes (Other)
  Sender: FDA-Public Use
  Company Number: GB-PFIZER INC-2019020718

PATIENT
  Age: 63 Year
  Sex: Male

DRUGS (2)
  1. DINUTUXIMAB [Suspect]
     Active Substance: DINUTUXIMAB
     Dosage: UNK (NCREASED TO 63ML/HOUR AT 17:22)
     Dates: start: 20180904, end: 20180904
  2. IRINOTECAN HCL [Suspect]
     Active Substance: IRINOTECAN HYDROCHLORIDE
     Dosage: UNK
     Dates: start: 20180904, end: 20180904

REACTIONS (3)
  - Incorrect drug administration rate [Unknown]
  - Sinus bradycardia [Unknown]
  - Chest pain [Unknown]

NARRATIVE: CASE EVENT DATE: 20180904
